FAERS Safety Report 7524672-8 (Version None)
Quarter: 2011Q2

REPORT INFORMATION
  Report Type: 
  Country: None (occurrence: None)
  Receive Date: 20110606
  Receipt Date: 20110530
  Transmission Date: 20111010
  Serious: Yes (Hospitalization, Disabling)
  Sender: FDA-Public Use
  Company Number: BR-PFIZER INC-2011093524

PATIENT
  Age: 42 Year
  Sex: Female
  Weight: 49.8 kg

DRUGS (3)
  1. NEOSALDINA [Concomitant]
     Dosage: UNK
     Dates: start: 20110201
  2. DEPO-PROVERA [Suspect]
     Indication: OFF LABEL USE
     Dosage: 150 MG, EVERY 3 MONTHS
     Route: 030
  3. DEPO-PROVERA [Suspect]
     Indication: MENSTRUAL DISCOMFORT

REACTIONS (7)
  - MALAISE [None]
  - HEADACHE [None]
  - DRUG INEFFECTIVE FOR UNAPPROVED INDICATION [None]
  - OVARIAN CYST [None]
  - DIZZINESS [None]
  - VAGINAL INFECTION [None]
  - VAGINAL INFLAMMATION [None]
